FAERS Safety Report 11190513 (Version 1)
Quarter: 2015Q2

REPORT INFORMATION
  Report Type: Spontaneous
  Country: NL (occurrence: NL)
  Receive Date: 20150615
  Receipt Date: 20150615
  Transmission Date: 20150821
  Serious: Yes (Hospitalization)
  Sender: FDA-Public Use
  Company Number: NL-JNJFOC-20150603774

PATIENT
  Sex: Female

DRUGS (1)
  1. REMICADE [Suspect]
     Active Substance: INFLIXIMAB
     Indication: CROHN^S DISEASE
     Route: 042

REACTIONS (9)
  - Muscle contracture [Unknown]
  - Unresponsive to stimuli [Unknown]
  - Vomiting [Unknown]
  - Abnormal behaviour [Unknown]
  - Confusional state [Unknown]
  - Amnesia [Unknown]
  - Loss of consciousness [Unknown]
  - Headache [Unknown]
  - Consciousness fluctuating [Unknown]
